FAERS Safety Report 4380792-0 (Version None)
Quarter: 2004Q2

REPORT INFORMATION
  Report Type: 
  Country: None (occurrence: None)
  Receive Date: 20040616
  Receipt Date: 20040608
  Transmission Date: 20050107
  Serious: Yes (Hospitalization)
  Sender: FDA-Public Use
  Company Number: 2004037790

PATIENT
  Age: 76 Year
  Sex: Female

DRUGS (8)
  1. LIPITOR [Suspect]
     Indication: ILL-DEFINED DISORDER
     Dosage: 20 MG (2 IN 1 D), ORAL
     Route: 048
  2. BEZAFIBRATE (BEZAFIBRATE) [Suspect]
     Indication: ILL-DEFINED DISORDER
     Dosage: 400 MG (2 IN 1 D), ORAL
     Route: 048
  3. NIFEDIPINE [Suspect]
     Indication: ILL-DEFINED DISORDER
     Dosage: 120 MG (2 IN 1 D), ORAL
     Route: 048
  4. ATENOLOL [Concomitant]
  5. DIGITOXIN TAB [Concomitant]
  6. DISOPYRAMIDE [Concomitant]
  7. ISOSORBIDE DINITRATE [Concomitant]
  8. ASPIRIN [Concomitant]

REACTIONS (8)
  - ALANINE AMINOTRANSFERASE INCREASED [None]
  - ARRHYTHMIA [None]
  - ASPARTATE AMINOTRANSFERASE INCREASED [None]
  - BLOOD TRIGLYCERIDES INCREASED [None]
  - BRADYCARDIA [None]
  - ELECTROCARDIOGRAM QT PROLONGED [None]
  - FEELING ABNORMAL [None]
  - RENAL IMPAIRMENT [None]
